FAERS Safety Report 8041807-1 (Version None)
Quarter: 2012Q1

REPORT INFORMATION
  Report Type: 
  Country: None (occurrence: None)
  Receive Date: 20120112
  Receipt Date: 20120104
  Transmission Date: 20120608
  Serious: Yes (Death, Hospitalization)
  Sender: FDA-Public Use
  Company Number: US-ACTELION-A-NJ2011-58615

PATIENT

DRUGS (3)
  1. VENTAVIS [Suspect]
     Indication: PULMONARY ARTERIAL HYPERTENSION
     Dosage: UNK
     Route: 055
     Dates: start: 20101028, end: 20111026
  2. METHOTREXATE [Concomitant]
  3. REVATIO [Concomitant]

REACTIONS (5)
  - CELLULITIS [None]
  - DEATH [None]
  - ELECTROLYTE IMBALANCE [None]
  - HYPOTENSION [None]
  - RENAL DISORDER [None]
